FAERS Safety Report 17952122 (Version 1)
Quarter: 2020Q2

REPORT INFORMATION
  Report Type: Spontaneous
  Country: US (occurrence: US)
  Receive Date: 20200626
  Receipt Date: 20200626
  Transmission Date: 20200714
  Serious: Yes (Other)
  Sender: FDA-Public Use
  Company Number: US-AMNEAL PHARMACEUTICALS-2020-AMRX-01773

PATIENT

DRUGS (2)
  1. METFORMIN HYDROCHLORIDE. [Suspect]
     Active Substance: METFORMIN HYDROCHLORIDE
     Indication: BLOOD GLUCOSE INCREASED
     Dosage: 3 TABLETS, DAILY WITH NIGHT MEAL
     Route: 065
     Dates: start: 20200311, end: 202005
  2. METFORMIN HYDROCHLORIDE. [Suspect]
     Active Substance: METFORMIN HYDROCHLORIDE
     Dosage: 2 TABLETS, DAILY WITH NIGHT MEAL
     Route: 065
     Dates: start: 202005, end: 20200528

REACTIONS (9)
  - Weight decreased [Recovering/Resolving]
  - Gastrointestinal motility disorder [Recovered/Resolved]
  - Nail discolouration [Recovered/Resolved]
  - Fatigue [Recovered/Resolved]
  - Product residue present [Unknown]
  - Skin discolouration [Recovered/Resolved]
  - Vomiting [Recovered/Resolved]
  - Malaise [Recovered/Resolved]
  - Dehydration [Recovering/Resolving]

NARRATIVE: CASE EVENT DATE: 2020
